FAERS Safety Report 5353447-3 (Version None)
Quarter: 2007Q2

REPORT INFORMATION
  Report Type: 
  Country: None (occurrence: None)
  Receive Date: 20070612
  Receipt Date: 20070601
  Transmission Date: 20071010
  Serious: Yes (Hospitalization)
  Sender: FDA-Public Use
  Company Number: PHBS2007JP09349

PATIENT
  Sex: Female

DRUGS (1)
  1. ZADITEN [Suspect]
     Indication: URTICARIA
     Route: 048

REACTIONS (3)
  - HYPOAESTHESIA [None]
  - MONOPLEGIA [None]
  - SOMNOLENCE [None]
